FAERS Safety Report 6885056-9 (Version None)
Quarter: 2010Q3

REPORT INFORMATION
  Report Type: 
  Country: None (occurrence: None)
  Receive Date: 20100729
  Receipt Date: 20071105
  Transmission Date: 20110219
  Serious: Yes (Other)
  Sender: FDA-Public Use
  Company Number: US-PFIZER INC-2007088827

PATIENT
  Sex: Female
  Weight: 68 kg

DRUGS (7)
  1. CELEBREX [Suspect]
     Indication: ARTHRITIS
     Dates: start: 20071017, end: 20071019
  2. CELEBREX [Suspect]
     Indication: PAIN IN EXTREMITY
  3. ULTRAM [Suspect]
     Indication: ARTHRITIS
     Route: 048
     Dates: start: 20071005, end: 20071014
  4. ULTRAM [Suspect]
     Indication: BACK PAIN
  5. ATENOLOL [Concomitant]
     Indication: ARRHYTHMIA
     Route: 048
  6. DYAZIDE [Concomitant]
     Indication: FLUID RETENTION
  7. FOSAMAX [Concomitant]
     Indication: OSTEOPOROSIS

REACTIONS (5)
  - DYSPNOEA [None]
  - FEELING ABNORMAL [None]
  - HYPERHIDROSIS [None]
  - PNEUMONIA [None]
  - URINARY TRACT INFECTION [None]
